FAERS Safety Report 11197727 (Version 3)
Quarter: 2015Q3

REPORT INFORMATION
  Report Type: Spontaneous
  Country: GB (occurrence: GB)
  Receive Date: 20150617
  Receipt Date: 20150731
  Transmission Date: 20151125
  Serious: Yes (Death, Other)
  Sender: FDA-Public Use
  Company Number: GB-BAXTER-2015BAX032439

PATIENT
  Sex: Female

DRUGS (6)
  1. SODIUM CHLORIDE 0.9% INTRAVENOUS INFUSION BP [Suspect]
     Active Substance: SODIUM CHLORIDE
     Indication: MEDULLOBLASTOMA
  2. THIOTEPA. [Suspect]
     Active Substance: THIOTEPA
     Indication: MEDULLOBLASTOMA
     Route: 042
  3. SODIUM CHLORIDE 0.9% INTRAVENOUS INFUSION BP [Suspect]
     Active Substance: SODIUM CHLORIDE
     Indication: MEDICATION DILUTION
     Route: 042
  4. WATER FOR INJECTION [Suspect]
     Active Substance: WATER
     Indication: MEDICATION DILUTION
     Route: 042
  5. WATER FOR INJECTION [Suspect]
     Active Substance: WATER
     Indication: MEDULLOBLASTOMA
  6. THIOTEPA. [Suspect]
     Active Substance: THIOTEPA
     Route: 042

REACTIONS (2)
  - Neurotoxicity [Fatal]
  - Central nervous system necrosis [Not Recovered/Not Resolved]
